FAERS Safety Report 6530242-0 (Version None)
Quarter: 2010Q1

REPORT INFORMATION
  Report Type: 
  Country: None (occurrence: None)
  Receive Date: 20100107
  Receipt Date: 20091229
  Transmission Date: 20100710
  Serious: Yes (Other)
  Sender: FDA-Public Use
  Company Number: US-BAXTER-2009BH019876

PATIENT
  Age: 64 Year
  Sex: Male

DRUGS (1)
  1. CARDIOPLEGIA BASE SOLUTION IN PLASTIC CONTAINER [Suspect]
     Indication: CARDIAC OPERATION
     Route: 065
     Dates: start: 20091222, end: 20091222

REACTIONS (2)
  - CARDIAC DISORDER [None]
  - DRUG INEFFECTIVE [None]
